FAERS Safety Report 17363481 (Version 1)
Quarter: 2020Q1

REPORT INFORMATION
  Report Type: Spontaneous
  Country: US (occurrence: US)
  Receive Date: 20200203
  Receipt Date: 20200203
  Transmission Date: 20200409
  Serious: No
  Sender: FDA-Public Use
  Company Number: US-JUBILANT CADISTA PHARMACEUTICALS-2019JUB00288

PATIENT
  Age: 80 Year
  Sex: Male

DRUGS (2)
  1. TERAZOSIN [Suspect]
     Active Substance: TERAZOSIN HYDROCHLORIDE
     Indication: DYSURIA
     Dosage: 5 MG, 1X/DAY AT NIGHT
     Dates: start: 20190625, end: 2019
  2. TERAZOSIN [Suspect]
     Active Substance: TERAZOSIN HYDROCHLORIDE
     Indication: DYSURIA
     Dosage: 2 MG, 1X/DAY AT NIGHT
     Dates: start: 2019

REACTIONS (4)
  - Swelling face [Not Recovered/Not Resolved]
  - Product substitution issue [Not Recovered/Not Resolved]
  - Vision blurred [Not Recovered/Not Resolved]
  - Peripheral swelling [Not Recovered/Not Resolved]

NARRATIVE: CASE EVENT DATE: 20190625
